FAERS Safety Report 18777869 (Version 4)
Quarter: 2021Q4

REPORT INFORMATION
  Report Type: Spontaneous
  Country: US (occurrence: US)
  Receive Date: 20210122
  Receipt Date: 20211026
  Transmission Date: 20220303
  Serious: Yes (Other)
  Sender: FDA-Public Use
  Company Number: US-SEATTLE GENETICS-2020SGN03642

PATIENT

DRUGS (7)
  1. TUKYSA [Suspect]
     Active Substance: TUCATINIB
     Indication: Breast cancer female
     Dosage: 2 DF, BID
  2. TUKYSA [Suspect]
     Active Substance: TUCATINIB
     Dosage: 2 DF, BID
  3. TUKYSA [Suspect]
     Active Substance: TUCATINIB
     Dosage: 2 DF, BID
  4. TUKYSA [Suspect]
     Active Substance: TUCATINIB
     Dosage: 2 DF, BID
  5. TUKYSA [Suspect]
     Active Substance: TUCATINIB
     Dosage: 2 UNK
  6. TUKYSA [Suspect]
     Active Substance: TUCATINIB
     Dosage: UNK
  7. GABAPENTIN [Concomitant]
     Active Substance: GABAPENTIN

REACTIONS (12)
  - Nephrolithiasis [Unknown]
  - Neuropathy peripheral [Unknown]
  - Spinal pain [Unknown]
  - Acne cystic [Unknown]
  - Somnolence [Unknown]
  - Product dose omission issue [Unknown]
  - Nail discolouration [Unknown]
  - Onycholysis [Unknown]
  - Fatigue [Unknown]
  - Rash macular [Unknown]
  - Diarrhoea [Recovered/Resolved]
  - Sinusitis [Unknown]

NARRATIVE: CASE EVENT DATE: 20200813
